FAERS Safety Report 20167020 (Version 1)
Quarter: 2021Q4

REPORT INFORMATION
  Report Type: Spontaneous
  Country: JP (occurrence: JP)
  Receive Date: 20211209
  Receipt Date: 20211209
  Transmission Date: 20220303
  Serious: Yes (Death, Other)
  Sender: FDA-Public Use
  Company Number: JP-009507513-2110JPN007908

PATIENT
  Age: 70 Year
  Sex: Female

DRUGS (5)
  1. KEYTRUDA [Suspect]
     Active Substance: PEMBROLIZUMAB
     Indication: Non-small cell lung cancer
     Dosage: 200 MILLIGRAM, 1/3 WEEKS (CYCLICAL)
     Route: 041
     Dates: start: 201901
  2. PEMETREXED [Suspect]
     Active Substance: PEMETREXED
     Indication: Lung adenocarcinoma recurrent
     Dosage: 500 MG/M2, CYCLES
  3. PEMETREXED [Suspect]
     Active Substance: PEMETREXED
     Indication: Lung adenocarcinoma
  4. CARBOPLATIN [Concomitant]
     Active Substance: CARBOPLATIN
     Indication: Lung adenocarcinoma
     Dosage: 430 MG, THE AREA UNDER THE CONCENTRATION-TIME CURVE (AUC); 5 (TOTAL 4 CYCLES)
  5. CARBOPLATIN [Concomitant]
     Active Substance: CARBOPLATIN
     Indication: Lung adenocarcinoma recurrent

REACTIONS (4)
  - Immune-mediated adrenal insufficiency [Unknown]
  - Primary adrenal insufficiency [Recovered/Resolved]
  - Malignant neoplasm progression [Fatal]
  - Product use issue [Unknown]
